FAERS Safety Report 6382351-7 (Version None)
Quarter: 2009Q3

REPORT INFORMATION
  Report Type: 
  Country: None (occurrence: None)
  Receive Date: 20090925
  Receipt Date: 20090914
  Transmission Date: 20100115
  Serious: Yes (Other)
  Sender: FDA-Public Use
  Company Number: 233485K09USA

PATIENT
  Age: 28 Year
  Sex: Female

DRUGS (2)
  1. REBIF [Suspect]
     Indication: MULTIPLE SCLEROSIS
     Dosage: 44 MCG, 3 IN 1 WEEKS, SUBCUTANEOUS
     Route: 058
     Dates: start: 20081119, end: 20090211
  2. SYNTHROID [Concomitant]

REACTIONS (11)
  - ARTHRALGIA [None]
  - BABESIOSIS [None]
  - BARTONELLOSIS [None]
  - BLOOD IMMUNOGLOBULIN M INCREASED [None]
  - CARNITINE DEFICIENCY [None]
  - COELIAC DISEASE [None]
  - LYME DISEASE [None]
  - PNEUMONIA CHLAMYDIAL [None]
  - VITAMIN B12 DEFICIENCY [None]
  - VITAMIN D DEFICIENCY [None]
  - ZINC DEFICIENCY [None]
